FAERS Safety Report 21330471 (Version 5)
Quarter: 2022Q4

REPORT INFORMATION
  Report Type: Spontaneous
  Country: US (occurrence: US)
  Receive Date: 20220913
  Receipt Date: 20221003
  Transmission Date: 20230113
  Serious: Yes (Other)
  Sender: FDA-Public Use
  Company Number: US-PFIZER INC-PV202200062115

PATIENT
  Age: 20 Year
  Sex: Female

DRUGS (1)
  1. XELJANZ [Suspect]
     Active Substance: TOFACITINIB CITRATE
     Indication: Proctitis ulcerative
     Dosage: UNK
     Dates: start: 2017

REACTIONS (7)
  - Autism spectrum disorder [Unknown]
  - Suicidal ideation [Unknown]
  - Condition aggravated [Unknown]
  - Off label use [Unknown]
  - Attention deficit hyperactivity disorder [Unknown]
  - Fear of injection [Unknown]
  - Depressed mood [Unknown]

NARRATIVE: CASE EVENT DATE: 20170101
